FAERS Safety Report 10032821 (Version 1)
Quarter: 2014Q1

REPORT INFORMATION
  Report Type: Spontaneous
  Country: CH (occurrence: CH)
  Receive Date: 20140324
  Receipt Date: 20140324
  Transmission Date: 20141002
  Serious: Yes (Hospitalization)
  Sender: FDA-Public Use
  Company Number: CH-PFIZER INC-2014078513

PATIENT
  Age: 55 Year
  Sex: Male
  Weight: 67.8 kg

DRUGS (5)
  1. TAZOBAC [Suspect]
     Dosage: 4.5 G, 3X/DAY
     Route: 041
     Dates: start: 20140103, end: 20140111
  2. TAVANIC [Suspect]
     Dosage: 750 MG, 1X/DAY
     Route: 041
     Dates: start: 20140103, end: 20140111
  3. ASPIRIN CARDIO [Concomitant]
     Dosage: 100 MG, 1X/DAY
     Route: 048
  4. CONCOR [Concomitant]
     Dosage: 5 MG, 1X/DAY
     Route: 048
  5. ALLOPUR [Concomitant]
     Dosage: 300 MG, 1X/DAY
     Route: 048

REACTIONS (3)
  - Delirium [Recovered/Resolved]
  - Hypoacusis [Recovered/Resolved]
  - Hallucination [Recovered/Resolved]
